FAERS Safety Report 4536198-4 (Version None)
Quarter: 2004Q4

REPORT INFORMATION
  Report Type: 
  Country: None (occurrence: None)
  Receive Date: 20041220
  Receipt Date: 20030912
  Transmission Date: 20050328
  Serious: Yes (Hospitalization)
  Sender: FDA-Public Use
  Company Number: MEDI-0002493

PATIENT
  Age: 77 Year
  Sex: Male
  Weight: 106.1417 kg

DRUGS (10)
  1. ETHYOL [Suspect]
     Indication: RADIOTHERAPY
     Dosage: 500 MG, 5 IN 1 WK, SUBCUTANEOUS
     Route: 058
     Dates: start: 20030501, end: 20030509
  2. ETHYOL [Suspect]
     Indication: RADIOTHERAPY
     Dosage: 500 MG, 5 IN 1 WK, SUBCUTANEOUS
     Route: 058
     Dates: start: 20030512, end: 20030512
  3. ETHYOL [Suspect]
     Indication: RADIOTHERAPY
     Dosage: 500 MG, 5 IN 1 WK, SUBCUTANEOUS
     Route: 058
     Dates: start: 20030521, end: 20030521
  4. TAXOL [Concomitant]
  5. CARBOPLATIN [Concomitant]
  6. ZOFRAN [Concomitant]
  7. DECADRON [Concomitant]
  8. PEPCID [Concomitant]
  9. BENADRYL [Concomitant]
  10. TOPROL-XL [Concomitant]

REACTIONS (20)
  - ANOREXIA [None]
  - BACK PAIN [None]
  - BLOOD ALBUMIN INCREASED [None]
  - BLOOD CALCIUM ABNORMAL [None]
  - BLOOD CREATININE ABNORMAL [None]
  - BLOOD MAGNESIUM ABNORMAL [None]
  - BLOOD POTASSIUM ABNORMAL [None]
  - BLOOD PRESSURE DECREASED [None]
  - BLOOD SODIUM ABNORMAL [None]
  - CHILLS [None]
  - DEHYDRATION [None]
  - INJECTION SITE REACTION [None]
  - MUCOSAL INFLAMMATION [None]
  - NAUSEA [None]
  - PAIN [None]
  - PERFORMANCE STATUS DECREASED [None]
  - PLATELET COUNT ABNORMAL [None]
  - PYREXIA [None]
  - RASH [None]
  - VOMITING [None]
